FAERS Safety Report 18790885 (Version 3)
Quarter: 2021Q1

REPORT INFORMATION
  Report Type: Spontaneous
  Country: US (occurrence: US)
  Receive Date: 20210126
  Receipt Date: 20210315
  Transmission Date: 20210419
  Serious: Yes (Other)
  Sender: FDA-Public Use
  Company Number: US-SA-2021SA021206

PATIENT
  Sex: Female

DRUGS (3)
  1. APIDRA SOLOSTAR [Suspect]
     Active Substance: INSULIN GLULISINE
     Dosage: WENT TO 8?10 UNITS PER DOSE
     Route: 065
  2. APIDRA SOLOSTAR [Suspect]
     Active Substance: INSULIN GLULISINE
     Indication: TYPE 1 DIABETES MELLITUS
     Dosage: 8 UNITS 3 TIMES A DAY AND AT BEDTIME
     Route: 065
  3. APIDRA SOLOSTAR [Suspect]
     Active Substance: INSULIN GLULISINE
     Dosage: 5?8 UNITS BEFORE MEALS + AT BEDTIME PRN
     Route: 065

REACTIONS (4)
  - Product quality issue [Unknown]
  - Diabetes mellitus inadequate control [Unknown]
  - Urinary tract infection [Recovered/Resolved]
  - Vision blurred [Unknown]
